FAERS Safety Report 7493946-1 (Version None)
Quarter: 2011Q2

REPORT INFORMATION
  Report Type: 
  Country: None (occurrence: None)
  Receive Date: 20110519
  Receipt Date: 20110519
  Transmission Date: 20111010
  Serious: Yes (Other)
  Sender: FDA-Public Use
  Company Number: None

PATIENT
  Sex: Female
  Weight: 95.2554 kg

DRUGS (2)
  1. ACETAMINOPHEN [Suspect]
     Indication: BACK PAIN
     Dosage: 2 CAPS EVERY 8 HRS PO
     Route: 048
     Dates: start: 20110513, end: 20110514
  2. ACETAMINOPHEN [Suspect]
     Indication: PAIN IN EXTREMITY
     Dosage: 2 CAPS EVERY 8 HRS PO
     Route: 048
     Dates: start: 20110513, end: 20110514

REACTIONS (7)
  - IMPAIRED WORK ABILITY [None]
  - HEADACHE [None]
  - VOMITING [None]
  - PRODUCT QUALITY ISSUE [None]
  - MALAISE [None]
  - NAUSEA [None]
  - COLD SWEAT [None]
